FAERS Safety Report 24008389 (Version 1)
Quarter: 2024Q2

REPORT INFORMATION
  Report Type: Spontaneous
  Country: US (occurrence: US)
  Receive Date: 20240625
  Receipt Date: 20240625
  Transmission Date: 20240716
  Serious: Yes (Hospitalization)
  Sender: FDA-Public Use
  Company Number: US-002147023-NVSC2024US130084

PATIENT
  Age: 56 Year
  Sex: Female
  Weight: 107 kg

DRUGS (1)
  1. COSENTYX [Suspect]
     Active Substance: SECUKINUMAB
     Indication: Rheumatoid arthritis
     Dosage: UNK, QMO (EVERY 4 WEEKS)
     Route: 058

REACTIONS (1)
  - Musculoskeletal stiffness [Unknown]

NARRATIVE: CASE EVENT DATE: 20240606
